FAERS Safety Report 4942891-1 (Version None)
Quarter: 2006Q1

REPORT INFORMATION
  Report Type: 
  Country: None (occurrence: None)
  Receive Date: 20060309
  Receipt Date: 20060224
  Transmission Date: 20060701
  Serious: Yes (Hospitalization, Disabling)
  Sender: FDA-Public Use
  Company Number: GXKR2006FR00869

PATIENT
  Age: 69 Year
  Sex: Male

DRUGS (2)
  1. RIBAVIRIN [Suspect]
     Indication: HEPATITIS C
     Dosage: 800 MG, QD
  2. PEGINTERFERON ALFA-2B (PEGINTERFERON ALFA-2B) [Suspect]
     Indication: HEPATITIS C
     Dosage: SEE IMAGE

REACTIONS (10)
  - EYE INFECTION BACTERIAL [None]
  - HAEMOGLOBIN DECREASED [None]
  - HYPOTHERMIA [None]
  - NEUTROPENIA [None]
  - PANOPHTHALMITIS [None]
  - PULMONARY TUBERCULOSIS [None]
  - STAPHYLOCOCCAL BACTERAEMIA [None]
  - THROMBOCYTOPENIA [None]
  - VISUAL ACUITY REDUCED [None]
  - WHITE BLOOD CELL COUNT DECREASED [None]
